FAERS Safety Report 9276357 (Version 1)
Quarter: 2012Q4

REPORT INFORMATION
  Report Type: Spontaneous
  Country: GB (occurrence: None)
  Receive Date: 20121109
  Receipt Date: 20121109
  Transmission Date: 20130627
  Serious: Yes (Hospitalization)
  Sender: FDA-Public Use
  Company Number: 2012S1000230

PATIENT
  Age: 76 Year
  Sex: Male
  Weight: 90 kg

DRUGS (2)
  1. CUBICIN (DAPTOMYCIN) [Suspect]
     Indication: ARTHRITIS INFECTIVE
     Route: 042
     Dates: start: 20120120, end: 20120216
  2. RIFAMPICIN [Concomitant]

REACTIONS (2)
  - Eosinophilic pneumonia [None]
  - Haemolytic anaemia [None]
